FAERS Safety Report 10509890 (Version 4)
Quarter: 2014Q4

REPORT INFORMATION
  Report Type: Spontaneous
  Country: US (occurrence: US)
  Receive Date: 20141010
  Receipt Date: 20141124
  Transmission Date: 20150528
  Serious: Yes (Hospitalization, Other)
  Sender: FDA-Public Use
  Company Number: US-UNITED THERAPEUTICS-UNT-2014-008769

PATIENT
  Age: 43 Year
  Sex: Female
  Weight: 132.2 kg

DRUGS (6)
  1. REMODULIN [Suspect]
     Active Substance: TREPROSTINIL
     Indication: PULMONARY ARTERIAL HYPERTENSION
     Dosage: 0.002 ?G/KG, CONTINUING
     Route: 058
     Dates: start: 20140923
  2. REMODULIN [Suspect]
     Active Substance: TREPROSTINIL
     Dosage: 0.002 ?G/KG, CONTINUING
     Route: 041
     Dates: start: 20140926
  3. REMODULIN [Suspect]
     Active Substance: TREPROSTINIL
     Dosage: 0.005 ?G/KG, CONTINUING
     Route: 041
     Dates: start: 20140926
  4. REVATIO [Concomitant]
     Active Substance: SILDENAFIL CITRATE
     Indication: PRODUCT USED FOR UNKNOWN INDICATION
  5. SILDENAFIL. [Concomitant]
     Active Substance: SILDENAFIL
     Indication: PRODUCT USED FOR UNKNOWN INDICATION
  6. ASPIRIN. [Concomitant]
     Active Substance: ASPIRIN
     Indication: PRODUCT USED FOR UNKNOWN INDICATION

REACTIONS (17)
  - Diarrhoea [Unknown]
  - Retching [Recovered/Resolved]
  - Heart rate increased [Unknown]
  - Unresponsive to stimuli [Recovered/Resolved]
  - Disturbance in attention [Unknown]
  - Hypotension [Unknown]
  - Vomiting [Recovered/Resolved]
  - Infusion site pain [Recovering/Resolving]
  - Speech disorder [Unknown]
  - Device issue [Unknown]
  - Malaise [Unknown]
  - Crying [Recovered/Resolved]
  - Infusion site erythema [Unknown]
  - Dizziness [Unknown]
  - Infusion site infection [Unknown]
  - Drug dose omission [Recovered/Resolved]
  - Accidental overdose [Recovered/Resolved]

NARRATIVE: CASE EVENT DATE: 2014
